FAERS Safety Report 5494971-2 (Version None)
Quarter: 2007Q4

REPORT INFORMATION
  Report Type: 
  Country: None (occurrence: None)
  Receive Date: 20071024
  Receipt Date: 20071018
  Transmission Date: 20080405
  Serious: Yes (Other)
  Sender: FDA-Public Use
  Company Number: B0492334A

PATIENT
  Age: 61 Year
  Sex: Female

DRUGS (4)
  1. AMOXICILLIN AND CLAVULANATE POTASSIUM [Suspect]
     Indication: TOOTH ABSCESS
     Dosage: 1500MG PER DAY
     Route: 048
     Dates: start: 20070903, end: 20070910
  2. ISCOVER [Suspect]
     Indication: CEREBRAL VENOUS THROMBOSIS
     Dosage: 75MG PER DAY
     Route: 048
     Dates: start: 20010101
  3. IDEOS [Suspect]
     Indication: DRUG USE FOR UNKNOWN INDICATION
     Route: 048
  4. ACTONEL [Suspect]
     Indication: DRUG USE FOR UNKNOWN INDICATION
     Route: 048

REACTIONS (2)
  - DRUG INTERACTION [None]
  - SPONTANEOUS HAEMATOMA [None]
